FAERS Safety Report 25090947 (Version 1)
Quarter: 2025Q1

REPORT INFORMATION
  Report Type: Spontaneous
  Country: US (occurrence: None)
  Receive Date: 20250318
  Receipt Date: 20250318
  Transmission Date: 20250409
  Serious: Yes (Hospitalization)
  Sender: FDA-CTU
  Company Number: None

PATIENT
  Age: 82 Year
  Sex: Male

DRUGS (3)
  1. VYNDAMAX [Suspect]
     Active Substance: TAFAMIDIS
  2. TORSEMIDE [Suspect]
     Active Substance: TORSEMIDE
  3. MIRALAX [Suspect]
     Active Substance: POLYETHYLENE GLYCOL 3350
     Dosage: FREQUENCY : DAILY;?
     Route: 048

REACTIONS (6)
  - Chest pain [None]
  - Dyspnoea [None]
  - Dehydration [None]
  - Diarrhoea [None]
  - Weight decreased [None]
  - Blood glucose increased [None]
